FAERS Safety Report 10365326 (Version 1)
Quarter: 2014Q3

REPORT INFORMATION
  Report Type: Spontaneous
  Country: US (occurrence: None)
  Receive Date: 20140804
  Receipt Date: 20140804
  Transmission Date: 20150326
  Serious: Yes (Congenital Anomaly)
  Sender: FDA-Public Use
  Company Number: 2014AP003739

PATIENT
  Age: 0 Day

DRUGS (1)
  1. PAROXETINE [Suspect]
     Active Substance: PAROXETINE\PAROXETINE HYDROCHLORIDE
     Indication: DEPRESSION
     Route: 064

REACTIONS (3)
  - Maternal drugs affecting foetus [None]
  - Hypospadias [None]
  - Congenital anomaly [None]

NARRATIVE: CASE EVENT DATE: 19960817
